FAERS Safety Report 6569257-5 (Version None)
Quarter: 2010Q1

REPORT INFORMATION
  Report Type: 
  Country: None (occurrence: None)
  Receive Date: 20100201
  Receipt Date: 20100201
  Transmission Date: 20100710
  Serious: Yes (Other)
  Sender: FDA-Public Use
  Company Number: None

PATIENT
  Sex: Male

DRUGS (1)
  1. HIBICLENS [Suspect]
     Dosage: 060

REACTIONS (6)
  - ARTHROPOD BITE [None]
  - ECONOMIC PROBLEM [None]
  - RASH [None]
  - SELF-MEDICATION [None]
  - TINEA INFECTION [None]
  - TREATMENT NONCOMPLIANCE [None]
